FAERS Safety Report 9547179 (Version 1)
Quarter: 2013Q2

REPORT INFORMATION
  Report Type: Spontaneous
  Country: US (occurrence: None)
  Receive Date: 20130606
  Receipt Date: 20130606
  Transmission Date: 20140414
  Serious: No
  Sender: FDA-Public Use
  Company Number: 2013PROUSA02570

PATIENT
  Age: 88 Year
  Sex: Male
  Weight: 71.7 kg

DRUGS (4)
  1. PROVENGE (SIPULEUCEL-T) SUSPENSION, 250ML [Suspect]
     Indication: PROSTATE CANCER METASTATIC
     Dosage: 250 ML, SINGLE, INTRAVENOUS
     Route: 042
     Dates: start: 20130204, end: 20130204
  2. TOPROL (METOPROLOL SUCCINATE) [Concomitant]
  3. LISINOPRIL (LISINOPRIL) [Concomitant]
  4. FUROSEMIDE (FUROSEMIDE) [Concomitant]

REACTIONS (4)
  - Nasal congestion [None]
  - Body temperature increased [None]
  - Fatigue [None]
  - Pyrexia [None]
